FAERS Safety Report 8136795-3 (Version None)
Quarter: 2012Q1

REPORT INFORMATION
  Report Type: 
  Country: None (occurrence: None)
  Receive Date: 20120214
  Receipt Date: 20120209
  Transmission Date: 20120608
  Serious: Yes (Hospitalization, Other)
  Sender: FDA-Public Use
  Company Number: KR-BAYER-2012-003054

PATIENT
  Age: 61 Year
  Sex: Male
  Weight: 82 kg

DRUGS (15)
  1. CAPECITABINE [Suspect]
     Indication: GASTRIC CANCER
     Dosage: UNK
     Dates: start: 20111114, end: 20120108
  2. WARFARIN SODIUM [Suspect]
     Dosage: UNK
     Dates: start: 20120116, end: 20120119
  3. WARFARIN SODIUM [Suspect]
     Indication: PULMONARY EMBOLISM
     Dosage: UNK
     Dates: start: 20120110, end: 20120110
  4. WARFARIN SODIUM [Suspect]
     Dosage: UNK
     Dates: start: 20120113, end: 20120113
  5. WARFARIN SODIUM [Suspect]
     Dosage: UNK
     Dates: start: 20120121, end: 20120121
  6. CAPECITABINE [Suspect]
     Dosage: UNK, CYCLE 4, DOSE REDUCED (NOS)
     Dates: start: 20120203
  7. CISPLATIN [Suspect]
     Dosage: UNK, CYCLE 4, DOSE REDUCED (NOS)
     Dates: start: 20120203
  8. SORAFENIB (RAF KINASE INHIBITOR) [Suspect]
     Dosage: 400 MG, BID, CYCLE 3
     Dates: start: 20111226, end: 20120108
  9. SORAFENIB (RAF KINASE INHIBITOR) [Suspect]
     Dosage: UNK, CYCLE 4, DOSE REDUCED (NOS)
     Dates: start: 20120203
  10. WARFARIN SODIUM [Suspect]
     Dosage: UNK
     Dates: start: 20120123
  11. SORAFENIB (RAF KINASE INHIBITOR) [Suspect]
     Indication: GASTRIC CANCER
     Dosage: UNK
     Dates: start: 20111114, end: 20120108
  12. CAPECITABINE [Suspect]
     Dosage: 1500 MG, BID
     Dates: start: 20111226, end: 20120108
  13. CISPLATIN [Suspect]
     Indication: GASTRIC CANCER
     Dosage: UNK
     Dates: start: 20111114
  14. CISPLATIN [Suspect]
     Dosage: 115 MG, QD
     Dates: start: 20111226, end: 20111226
  15. CISPLATIN [Suspect]
     Dosage: 115 MG, QD
     Dates: start: 20111226, end: 20120108

REACTIONS (4)
  - PNEUMONIA [None]
  - PULMONARY EMBOLISM [None]
  - FEBRILE NEUTROPENIA [None]
  - DEEP VEIN THROMBOSIS [None]
